FAERS Safety Report 11000899 (Version 1)
Quarter: 2015Q2

REPORT INFORMATION
  Report Type: Spontaneous
  Country: US (occurrence: US)
  Receive Date: 20150408
  Receipt Date: 20150408
  Transmission Date: 20150821
  Serious: No
  Sender: FDA-Public Use
  Company Number: US-SA-2014SA165655

PATIENT
  Sex: Male

DRUGS (2)
  1. MINERALS NOS/VITAMINS NOS [Suspect]
     Active Substance: MINERALS\VITAMINS
     Route: 065
  2. ALLEGRA [Suspect]
     Active Substance: FEXOFENADINE HYDROCHLORIDE
     Indication: HYPERSENSITIVITY
     Route: 065

REACTIONS (2)
  - Sinusitis [Recovering/Resolving]
  - Somnolence [Recovering/Resolving]
